FAERS Safety Report 21746862 (Version 1)
Quarter: 2022Q4

REPORT INFORMATION
  Report Type: Spontaneous
  Country: US (occurrence: None)
  Receive Date: 20221216
  Receipt Date: 20221216
  Transmission Date: 20230112
  Serious: Yes (Other)
  Sender: FDA-Public Use
  Company Number: None

PATIENT
  Sex: Female

DRUGS (5)
  1. TACROLIMUS [Suspect]
     Active Substance: TACROLIMUS
     Indication: Heart transplant
     Dosage: 0.5 MG ORAL??TAKE 2 CAPSULES BY MOUTH EVERY MORNING AND TAKE 1 CAPSULE BY MOUTH EVERY EVENING
     Route: 048
     Dates: start: 20170501
  2. MULTI-VIT [Concomitant]
  3. PROGRAF [Concomitant]
  4. SIROLIMUS [Concomitant]
  5. TRETINOIN CRE [Concomitant]

REACTIONS (1)
  - Pyrexia [None]
